FAERS Safety Report 11544934 (Version 2)
Quarter: 2015Q4

REPORT INFORMATION
  Report Type: Spontaneous
  Country: DE (occurrence: DE)
  Receive Date: 20150924
  Receipt Date: 20151009
  Transmission Date: 20160304
  Serious: Yes (Death, Other)
  Sender: FDA-Public Use
  Company Number: DE-JNJFOC-20150915141

PATIENT
  Age: 10 Decade
  Sex: Female

DRUGS (5)
  1. RISPERDAL [Suspect]
     Active Substance: RISPERIDONE
     Indication: PSYCHOTIC DISORDER
     Route: 048
  2. TAVOR [Concomitant]
     Active Substance: LORAZEPAM
     Route: 065
     Dates: start: 20150916
  3. TAVOR [Concomitant]
     Active Substance: LORAZEPAM
     Route: 065
  4. RISPERDAL [Suspect]
     Active Substance: RISPERIDONE
     Indication: BRAIN NEOPLASM
     Route: 048
  5. QUETIAPINE [Concomitant]
     Active Substance: QUETIAPINE
     Dosage: SINCE JULY (YEAR UNSPECIFIED)
     Route: 065

REACTIONS (4)
  - Death [Fatal]
  - Product use issue [Unknown]
  - Delirium [Unknown]
  - Condition aggravated [Unknown]
